FAERS Safety Report 15531298 (Version 2)
Quarter: 2018Q4

REPORT INFORMATION
  Report Type: Spontaneous
  Country: ID (occurrence: ID)
  Receive Date: 20181019
  Receipt Date: 20181025
  Transmission Date: 20190205
  Serious: Yes (Other)
  Sender: FDA-Public Use
  Company Number: ID-ROCHE-2201521

PATIENT
  Sex: Male

DRUGS (3)
  1. VALCYTE [Suspect]
     Active Substance: VALGANCICLOVIR HYDROCHLORIDE
     Indication: CYTOMEGALOVIRUS INFECTION
     Dosage: USED FOR +/- 3 MONTHS UNTIL ANTIGENEMIA
     Route: 065
     Dates: start: 201607, end: 2016
  2. CYMEVENE [Suspect]
     Active Substance: GANCICLOVIR
     Indication: CYTOMEGALOVIRUS INFECTION
     Dosage: 14 DAYS
     Route: 065
     Dates: start: 2014, end: 2014
  3. CYMEVENE [Suspect]
     Active Substance: GANCICLOVIR
     Dosage: USED FOR 12 DAYS
     Route: 065
     Dates: start: 201607, end: 2016

REACTIONS (9)
  - Neck mass [Unknown]
  - Arthralgia [Unknown]
  - Off label use [Unknown]
  - Cytomegalovirus infection [Recovered/Resolved]
  - Dizziness [Unknown]
  - Mass [Recovered/Resolved]
  - Intentional product use issue [Unknown]
  - Myocardial infarction [Unknown]
  - Cerebrovascular accident [Unknown]

NARRATIVE: CASE EVENT DATE: 2018
